FAERS Safety Report 15578671 (Version 1)
Quarter: 2018Q4

REPORT INFORMATION
  Report Type: Spontaneous
  Country: ES (occurrence: ES)
  Receive Date: 20181102
  Receipt Date: 20181102
  Transmission Date: 20190205
  Serious: Yes (Life-Threatening, Hospitalization)
  Sender: FDA-Public Use
  Company Number: ES-ACCORD-090833

PATIENT
  Age: 61 Year
  Sex: Female

DRUGS (2)
  1. CARBOPLATIN. [Suspect]
     Active Substance: CARBOPLATIN
     Indication: BREAST CANCER
     Dosage: 650 MG EVERY 21 DAYS
     Route: 042
     Dates: start: 20170329, end: 20170329
  2. DOCETAXEL ACCORD [Suspect]
     Active Substance: DOCETAXEL
     Indication: BREAST CANCER
     Dosage: 130 MG EVERY 21 DAYS?1 VIAL OF 8 ML
     Route: 042
     Dates: start: 20170329, end: 20170329

REACTIONS (3)
  - Urinary retention [Recovered/Resolved]
  - Off label use [Unknown]
  - Enteritis [Recovered/Resolved]

NARRATIVE: CASE EVENT DATE: 20170406
